FAERS Safety Report 25184330 (Version 1)
Quarter: 2025Q2

REPORT INFORMATION
  Report Type: Spontaneous
  Country: KR (occurrence: KR)
  Receive Date: 20250410
  Receipt Date: 20250410
  Transmission Date: 20250717
  Serious: Yes (Other)
  Sender: ALCON
  Company Number: KR-SANMEDPRD-2025-KOR-003882

PATIENT

DRUGS (1)
  1. RHOPRESSA [Suspect]
     Active Substance: NETARSUDIL MESYLATE
     Indication: Ocular hypertension
     Route: 047

REACTIONS (1)
  - Hypopyon [Recovered/Resolved]
